FAERS Safety Report 9562335 (Version 3)
Quarter: 2013Q4

REPORT INFORMATION
  Report Type: Report from Study
  Country: US (occurrence: US)
  Receive Date: 20130927
  Receipt Date: 20131211
  Transmission Date: 20140711
  Serious: No
  Sender: FDA-Public Use
  Company Number: US-VERTEX PHARMACEUTICALS INC-2013-009883

PATIENT
  Age: 14 Year
  Sex: Female

DRUGS (1)
  1. VX-770 [Suspect]
     Indication: CYSTIC FIBROSIS
     Dosage: UNK
     Dates: start: 20120418

REACTIONS (4)
  - Cough [Recovered/Resolved]
  - Hypersensitivity [Unknown]
  - Lung disorder [Unknown]
  - Forced expiratory volume decreased [Recovered/Resolved]
